FAERS Safety Report 14514719 (Version 1)
Quarter: 2018Q1

REPORT INFORMATION
  Report Type: Report from Study
  Country: US (occurrence: US)
  Receive Date: 20180209
  Receipt Date: 20180209
  Transmission Date: 20180509
  Serious: Yes (Death)
  Sender: FDA-Public Use
  Company Number: US-EXELIXIS-CABO-18012307

PATIENT
  Age: 56 Year
  Sex: Female
  Weight: 47.62 kg

DRUGS (4)
  1. CABOMETYX [Suspect]
     Active Substance: CABOZANTINIB S-MALATE
     Indication: RENAL CELL CARCINOMA
     Dosage: 40 MG, QD
     Route: 048
     Dates: start: 20170315
  2. LEVOTHYROXINE SODIUM. [Concomitant]
     Active Substance: LEVOTHYROXINE SODIUM
  3. DEXAMETHASONE. [Concomitant]
     Active Substance: DEXAMETHASONE
  4. FENTANYL. [Concomitant]
     Active Substance: FENTANYL

REACTIONS (1)
  - Death [Fatal]

NARRATIVE: CASE EVENT DATE: 201801
